FAERS Safety Report 6276194-2 (Version None)
Quarter: 2009Q3

REPORT INFORMATION
  Report Type: 
  Country: None (occurrence: None)
  Receive Date: 20090722
  Receipt Date: 20090720
  Transmission Date: 20100115
  Serious: Yes (Death)
  Sender: FDA-Public Use
  Company Number: GR-BRISTOL-MYERS SQUIBB COMPANY-14523070

PATIENT
  Age: 60 Year
  Sex: Male
  Weight: 76 kg

DRUGS (8)
  1. ERBITUX [Suspect]
     Indication: HEAD AND NECK CANCER
     Dosage: INITIATED ON 19MAR07.400MG/M2 AS A LOADING DOSE DURING 1ST WEEK + 250MG/M2 ON WEEKS 2-7
     Route: 042
     Dates: start: 20070319, end: 20070507
  2. CISPLATIN [Suspect]
     Indication: HEAD AND NECK CANCER
     Route: 042
     Dates: start: 20070319, end: 20070507
  3. RADIATION THERAPY [Suspect]
     Indication: HEAD AND NECK CANCER
     Dosage: 1 DF = 70 GY(TUMOUR AREA) + 45 GY(REST OF THE NECK; UNSPECIFIED INTERVAL
  4. ZOFRAN [Concomitant]
     Indication: NAUSEA
     Dosage: 2, 1 DAYS
     Route: 048
     Dates: start: 20070320, end: 20070322
  5. MESULID [Concomitant]
     Indication: ODYNOPHAGIA
     Dosage: 2, 1 DAYS
     Route: 048
     Dates: start: 20070322, end: 20070430
  6. LONALGAL [Concomitant]
     Dosage: 3, 1 DAYS
     Route: 048
  7. DURAGESIC-100 [Concomitant]
     Indication: ODYNOPHAGIA
     Dosage: FENTANYL; 1, 3 HRS
     Route: 062
     Dates: start: 20070430, end: 20070518
  8. SPORANOX [Concomitant]
     Indication: STOMATITIS
     Dosage: SPORANOX 10 MG/ML; 2, 1 DAYS
     Route: 048

REACTIONS (1)
  - CARDIAC ARREST [None]
